FAERS Safety Report 7064759-X (Version None)
Quarter: 2010Q4

REPORT INFORMATION
  Report Type: 
  Country: None (occurrence: None)
  Receive Date: 20101027
  Receipt Date: 19750609
  Transmission Date: 20110411
  Serious: Yes (Death, Hospitalization)
  Sender: FDA-Public Use
  Company Number: DE-ROCHE-750305697001

PATIENT
  Sex: Female

DRUGS (1)
  1. VALIUM [Suspect]
     Route: 048

REACTIONS (2)
  - DEATH [None]
  - DRUG TOXICITY [None]
